FAERS Safety Report 10288811 (Version 1)
Quarter: 2014Q3

REPORT INFORMATION
  Report Type: Spontaneous
  Country: JP (occurrence: JP)
  Receive Date: 20140709
  Receipt Date: 20140709
  Transmission Date: 20150326
  Serious: Yes (Other)
  Sender: FDA-Public Use
  Company Number: JP-ASTRAZENECA-2014SE47152

PATIENT
  Age: 75 Year
  Sex: Female

DRUGS (3)
  1. ERIBULIN MESILATE [Concomitant]
     Active Substance: ERIBULIN
     Dosage: 1.4 MG/M2
     Route: 065
  2. ERIBULIN MESILATE [Concomitant]
     Active Substance: ERIBULIN
     Dosage: 1.4 MG/M2, EVERY OTHER WEEK
     Route: 065
  3. FASLODEX [Suspect]
     Active Substance: FULVESTRANT
     Indication: BREAST CANCER
     Route: 030
     Dates: start: 201208

REACTIONS (4)
  - Pleural effusion [Unknown]
  - Malignant neoplasm progression [Unknown]
  - Cough [Unknown]
  - Metastases to liver [Unknown]
